FAERS Safety Report 18051221 (Version 5)
Quarter: 2020Q3

REPORT INFORMATION
  Report Type: Spontaneous
  Country: US (occurrence: US)
  Receive Date: 20200721
  Receipt Date: 20200824
  Transmission Date: 20201103
  Serious: Yes (Hospitalization, Other)
  Sender: FDA-Public Use
  Company Number: US-PFIZER INC-2020277840

PATIENT
  Age: 63 Year
  Sex: Female

DRUGS (3)
  1. INLYTA [Suspect]
     Active Substance: AXITINIB
     Dosage: 5 MG
     Dates: start: 20200720
  2. INLYTA [Suspect]
     Active Substance: AXITINIB
     Dosage: 5 MG
     Dates: start: 20200430
  3. INLYTA [Suspect]
     Active Substance: AXITINIB
     Dosage: 5 MG
     Dates: start: 20200725, end: 20200813

REACTIONS (8)
  - Gingival bleeding [Unknown]
  - Renal haemorrhage [Unknown]
  - Diarrhoea [Unknown]
  - Renal disorder [Unknown]
  - Abdominal pain [Unknown]
  - Pyrexia [Unknown]
  - Protein urine present [Unknown]
  - Blood creatinine increased [Unknown]
